FAERS Safety Report 9426824 (Version 1)
Quarter: 2013Q3

REPORT INFORMATION
  Report Type: Spontaneous
  Country: US (occurrence: US)
  Receive Date: 20130730
  Receipt Date: 20130730
  Transmission Date: 20140515
  Serious: No
  Sender: FDA-Public Use
  Company Number: US-SANOFI-AVENTIS-2012SA094916

PATIENT
  Age: 47 Year
  Sex: Male

DRUGS (2)
  1. ZOLPIDEM TARTRATE EXTENDED RELEASE - WINTHROP [Suspect]
     Indication: INSOMNIA
     Route: 048
  2. ANTIPSYCHOTICS [Concomitant]
     Indication: MENTAL DISORDER

REACTIONS (2)
  - Middle insomnia [Not Recovered/Not Resolved]
  - Therapeutic response decreased [Not Recovered/Not Resolved]
